FAERS Safety Report 6502337-9 (Version None)
Quarter: 2009Q4

REPORT INFORMATION
  Report Type: 
  Country: None (occurrence: None)
  Receive Date: 20091211
  Receipt Date: 20091130
  Transmission Date: 20100525
  Serious: Yes (Death, Life-Threatening, Hospitalization)
  Sender: FDA-Public Use
  Company Number: WAES 0912USA00771

PATIENT
  Age: 77 Year
  Sex: Male

DRUGS (13)
  1. FOSAMAX [Suspect]
     Indication: OSTEOPOROSIS
     Dosage: 35 MG/WKY/PO
     Route: 048
     Dates: start: 20071206, end: 20080830
  2. ACECOL [Concomitant]
  3. ASPARA CA [Concomitant]
  4. PRAMIPEXOLE DIHYDROCHLORIDE [Concomitant]
  5. MOHRUS L [Concomitant]
  6. CARBIDOPA AND LEVODOPA [Concomitant]
  7. PLETAL [Concomitant]
  8. ROCALTROL [Concomitant]
  9. SALAZOPYRIN [Concomitant]
  10. VOLTAREN [Concomitant]
  11. ZANTAC [Concomitant]
  12. CALCIUM LACTATE [Concomitant]
  13. PREDNISOLONE [Concomitant]

REACTIONS (6)
  - CAROTID ARTERY STENOSIS [None]
  - CEREBRAL HAEMORRHAGE [None]
  - CEREBRAL INFARCTION [None]
  - DEPRESSED LEVEL OF CONSCIOUSNESS [None]
  - DYSARTHRIA [None]
  - GAIT DISTURBANCE [None]
